FAERS Safety Report 17040960 (Version 1)
Quarter: 2019Q4

REPORT INFORMATION
  Report Type: Spontaneous
  Country: GB (occurrence: GB)
  Receive Date: 20191118
  Receipt Date: 20191118
  Transmission Date: 20200122
  Serious: Yes (Other)
  Sender: FDA-Public Use
  Company Number: GB-TEVA-2019-GB-1138195

PATIENT
  Age: 50 Year
  Sex: Female
  Weight: 67 kg

DRUGS (6)
  1. NAPROXEN. [Suspect]
     Active Substance: NAPROXEN
     Dosage: 1000MG/ DAY
     Route: 065
     Dates: start: 20191017
  2. OMEPRAZOLE. [Concomitant]
     Active Substance: OMEPRAZOLE
     Dosage: 1 DF/ DAY
     Dates: start: 20191017
  3. SALBUTAMOL [Concomitant]
     Active Substance: ALBUTEROL
     Dosage: 2 DF
     Route: 055
     Dates: start: 20190326
  4. CHLORPHENAMINE [Concomitant]
     Active Substance: CHLORPHENIRAMINE MALEATE
     Dosage: TAKE TWO IMMEDIATELY. TAKE ONE EVERY SI...
     Dates: start: 20191017
  5. QVAR [Concomitant]
     Active Substance: BECLOMETHASONE DIPROPIONATE
     Dosage: 2 DF/ DAY
     Route: 055
     Dates: start: 20160830
  6. FEXOFENADINE [Concomitant]
     Active Substance: FEXOFENADINE HYDROCHLORIDE
     Dosage: 1 DF/ DAY/ 30 DAYS
     Dates: start: 20190830, end: 20190929

REACTIONS (2)
  - Swelling face [Unknown]
  - Rash [Unknown]

NARRATIVE: CASE EVENT DATE: 20191017
